FAERS Safety Report 5282856-6 (Version None)
Quarter: 2007Q1

REPORT INFORMATION
  Report Type: 
  Country: None (occurrence: None)
  Receive Date: 20070329
  Receipt Date: 20070329
  Transmission Date: 20070707
  Serious: Yes (Hospitalization)
  Sender: FDA-Public Use
  Company Number: None

PATIENT
  Age: 61 Year
  Sex: Male

DRUGS (14)
  1. WARFARIN SODIUM [Suspect]
     Indication: HEART VALVE REPLACEMENT
     Dosage: 3.75 DAILY, EXC. 7.5MG ON WED DAILY PO
     Route: 048
     Dates: start: 20060906, end: 20070328
  2. NAPROXEN SODIUM [Suspect]
     Indication: PAIN
     Dosage: NAPROXEN SODIUM 3-4 TIMES/WEEK PO
     Route: 048
  3. ACETAMINOPHEN [Concomitant]
  4. ASPIRIN [Concomitant]
  5. CARVEDILOL [Concomitant]
  6. DIGOXIN [Concomitant]
  7. ENALAPRIL MALEATE [Concomitant]
  8. FOLIC ACID [Concomitant]
  9. INSULIN REGULAR -HUMAN- INJ INSULIN, REG. [Concomitant]
  10. SODIUM CHLORIDE [Concomitant]
  11. LOVASTATIN [Concomitant]
  12. PANTOPRAZOLE [Concomitant]
  13. HYDRALAZINE HCL [Concomitant]
  14. ISOSORBIDE MONONITRATE [Concomitant]

REACTIONS (4)
  - DIZZINESS [None]
  - HAEMATOCRIT DECREASED [None]
  - INTERNATIONAL NORMALISED RATIO INCREASED [None]
  - MELAENA [None]
